FAERS Safety Report 4299282-9 (Version None)
Quarter: 2004Q1

REPORT INFORMATION
  Report Type: 
  Country: None (occurrence: None)
  Receive Date: 20040217
  Receipt Date: 20040204
  Transmission Date: 20041129
  Serious: Yes (Disabling)
  Sender: FDA-Public Use
  Company Number: A112467

PATIENT
  Age: 38 Year
  Sex: Male
  Weight: 82.5547 kg

DRUGS (7)
  1. GEODON [Suspect]
     Indication: SCHIZOAFFECTIVE DISORDER
     Dosage: 160 MG (BID), ORAL
     Route: 048
     Dates: start: 20010418
  2. THIOTHIXENE [Suspect]
     Indication: ILL-DEFINED DISORDER
     Dosage: ORAL
     Route: 048
     Dates: end: 20010531
  3. TRAZODONE HCL [Suspect]
     Indication: DEPRESSION
     Dates: end: 20010531
  4. VALSARTAN (VALSARTAN) [Concomitant]
  5. PROPRANOLOL HCL [Concomitant]
  6. CARBAMAZEPINE [Concomitant]
  7. CLONAZEPAM [Concomitant]

REACTIONS (14)
  - AMNESIA [None]
  - BONE PAIN [None]
  - CONDITION AGGRAVATED [None]
  - DRUG INEFFECTIVE [None]
  - DYSKINESIA [None]
  - FATIGUE [None]
  - IMPAIRED WORK ABILITY [None]
  - PAIN EXACERBATED [None]
  - PAIN IN EXTREMITY [None]
  - PARANOIA [None]
  - RASH PAPULAR [None]
  - TEMPERATURE REGULATION DISORDER [None]
  - TREMOR [None]
  - WHITE BLOOD CELL COUNT INCREASED [None]
